FAERS Safety Report 5381819-X (Version None)
Quarter: 2007Q3

REPORT INFORMATION
  Report Type: 
  Country: None (occurrence: None)
  Receive Date: 20070705
  Receipt Date: 20070705
  Transmission Date: 20080115
  Serious: No
  Sender: FDA-Public Use
  Company Number: None

PATIENT
  Age: 72 Year
  Sex: Male

DRUGS (2)
  1. RITUXIMAB [Suspect]
     Indication: NEOPLASM MALIGNANT
     Dosage: 720MG OTHER IV
     Route: 042
     Dates: start: 20031118
  2. FLUDARABINE PHOSPHATE [Suspect]
     Dosage: 48MG OTHER IV
     Route: 042

REACTIONS (6)
  - CHILLS [None]
  - INFUSION RELATED REACTION [None]
  - NAUSEA [None]
  - RASH ERYTHEMATOUS [None]
  - RASH MACULAR [None]
  - VOMITING [None]
